FAERS Safety Report 7387202-X (Version None)
Quarter: 2011Q1

REPORT INFORMATION
  Report Type: 
  Country: None (occurrence: None)
  Receive Date: 20110331
  Receipt Date: 20110324
  Transmission Date: 20110831
  Serious: Yes (Hospitalization)
  Sender: FDA-Public Use
  Company Number: B0709624A

PATIENT
  Age: 78 Year
  Sex: Male

DRUGS (1)
  1. AUGMENTIN '125' [Suspect]
     Indication: BRONCHITIS BACTERIAL
     Route: 048
     Dates: start: 20100212, end: 20100212

REACTIONS (2)
  - ANAPHYLACTIC SHOCK [None]
  - RASH [None]
